FAERS Safety Report 9170275 (Version 1)
Quarter: 2013Q1

REPORT INFORMATION
  Report Type: Spontaneous
  Country: US (occurrence: US)
  Receive Date: 20130319
  Receipt Date: 20130319
  Transmission Date: 20140127
  Serious: Yes (Other)
  Sender: FDA-Public Use
  Company Number: US-SANOFI-AVENTIS-2013SA027098

PATIENT
  Sex: Female

DRUGS (2)
  1. AMARYL [Suspect]
  2. METFORMIN [Suspect]

REACTIONS (1)
  - Renal failure acute [Unknown]
